FAERS Safety Report 6902516-2 (Version None)
Quarter: 2010Q3

REPORT INFORMATION
  Report Type: 
  Country: None (occurrence: None)
  Receive Date: 20100730
  Receipt Date: 20100714
  Transmission Date: 20110219
  Serious: Yes (Other)
  Sender: FDA-Public Use
  Company Number: 640553

PATIENT
  Age: 90 Year
  Sex: Female

DRUGS (11)
  1. MORPHINE SULFATE [Suspect]
     Indication: PRODUCT USED FOR UNKNOWN INDICATION
     Dosage: 200MCG, EPIDURAL
     Route: 008
  2. ACETAMINOPHEN [Concomitant]
  3. TENORMIN [Concomitant]
  4. (LEVOTHYROXINE) [Concomitant]
  5. PANTOPRAZOLE [Concomitant]
  6. VITAMIN A [Concomitant]
  7. CEFAZOLIN [Concomitant]
  8. ONDANSETRON [Concomitant]
  9. CIPROFLOXACIN [Concomitant]
  10. FRAGMIN [Concomitant]
  11. MICARDIS [Concomitant]

REACTIONS (5)
  - APNOEIC ATTACK [None]
  - CHEST PAIN [None]
  - HYPOTENSION [None]
  - UNRESPONSIVE TO STIMULI [None]
  - VOMITING [None]
